FAERS Safety Report 7137902-1 (Version None)
Quarter: 2010Q4

REPORT INFORMATION
  Report Type: 
  Country: None (occurrence: None)
  Receive Date: 20101103
  Receipt Date: 20100826
  Transmission Date: 20110411
  Serious: Yes (Other)
  Sender: FDA-Public Use
  Company Number: 2010S1001321

PATIENT
  Age: 65 Year
  Sex: Female
  Weight: 87.5 kg

DRUGS (3)
  1. CUBICIN [Suspect]
     Indication: CELLULITIS
     Dosage: 4 MG/KG;	Q24H; IV
     Route: 042
     Dates: start: 20090107, end: 20100110
  2. CLINDAMYCIN [Suspect]
     Indication: CELLULITIS
     Dosage: 300 MG; QD; PO
     Route: 048
     Dates: start: 20090108, end: 20090112
  3. CLEXANE [Concomitant]

REACTIONS (1)
  - RENAL IMPAIRMENT [None]
